FAERS Safety Report 7941613-X (Version None)
Quarter: 2011Q4

REPORT INFORMATION
  Report Type: 
  Country: None (occurrence: None)
  Receive Date: 20111128
  Receipt Date: 20111116
  Transmission Date: 20120403
  Serious: Yes (Hospitalization, Other)
  Sender: FDA-Public Use
  Company Number: JP-NAPPMUNDI-MAG-2011-0001831

PATIENT
  Sex: Female

DRUGS (11)
  1. HUSCODE [Concomitant]
     Dosage: UNK
     Route: 055
     Dates: start: 20111114, end: 20111114
  2. EMPYNASE                           /00394801/ [Concomitant]
     Dosage: UNK
     Route: 048
     Dates: start: 20111114, end: 20111114
  3. ACETAMINOPHEN [Concomitant]
     Dosage: UNK
     Route: 065
     Dates: start: 20111114, end: 20111114
  4. CHLORPHENIRAMINE MALEATE [Concomitant]
     Dosage: UNK
     Route: 048
     Dates: start: 20111114, end: 20111114
  5. CLARITHROMYCIN [Interacting]
     Indication: PNEUMONIA MYCOPLASMAL
     Dosage: UNK
     Route: 048
     Dates: start: 20111114, end: 20111114
  6. THEOPHYLLINE [Suspect]
     Indication: PNEUMONIA MYCOPLASMAL
     Dosage: 800 MG, DAILY
     Dates: start: 20111114, end: 20111114
  7. ONON [Concomitant]
     Dosage: UNK
     Route: 048
     Dates: start: 20111114, end: 20111114
  8. DL-METHYLEPHEDRINE HCL [Concomitant]
     Dosage: UNK
     Route: 048
     Dates: start: 20111114, end: 20111114
  9. EPINASTINE HYDROCHLORIDE [Concomitant]
     Dosage: UNK
     Route: 048
     Dates: start: 20111114, end: 20111114
  10. SINGULAIR [Concomitant]
     Dosage: UNK
     Route: 048
     Dates: start: 20111114, end: 20111114
  11. SYMBICORT [Concomitant]
     Dosage: UNK
     Route: 055
     Dates: start: 20111114, end: 20111114

REACTIONS (3)
  - DRUG INTERACTION [None]
  - ERYTHEMA [None]
  - RHABDOMYOLYSIS [None]
